FAERS Safety Report 4288533-2 (Version None)
Quarter: 2004Q1

REPORT INFORMATION
  Report Type: 
  Country: None (occurrence: None)
  Receive Date: 20040205
  Receipt Date: 20031218
  Transmission Date: 20041129
  Serious: No
  Sender: FDA-Public Use
  Company Number: USA031255056

PATIENT
  Age: 66 Year
  Sex: Female
  Weight: 48 kg

DRUGS (10)
  1. FORTEO [Suspect]
     Indication: OSTEOPOROSIS
     Dates: start: 20031216, end: 20031218
  2. ADVAIR DISKUS 100/50 [Concomitant]
  3. FOSAMAX [Concomitant]
  4. ESTRATEST [Concomitant]
  5. LEVOXYL [Concomitant]
  6. CELEBREX [Concomitant]
  7. ELIDEL (PIMECROLIMUS) [Concomitant]
  8. SINGULAIR [Concomitant]
  9. NORVASC [Concomitant]
  10. NEXIUM [Concomitant]

REACTIONS (6)
  - DYSPNOEA [None]
  - EYE SWELLING [None]
  - FATIGUE [None]
  - MOUTH ULCERATION [None]
  - OROPHARYNGEAL SWELLING [None]
  - SWELLING FACE [None]
